FAERS Safety Report 13934681 (Version 1)
Quarter: 2017Q3

REPORT INFORMATION
  Report Type: Report from Study
  Country: CO (occurrence: CO)
  Receive Date: 20170905
  Receipt Date: 20170905
  Transmission Date: 20171127
  Serious: Yes (Death, Other)
  Sender: FDA-Public Use
  Company Number: CO-AMGEN-COLSL2017133332

PATIENT
  Age: 42 Year
  Sex: Male

DRUGS (1)
  1. VECTIBIX [Suspect]
     Active Substance: PANITUMUMAB
     Indication: COLORECTAL CANCER METASTATIC
     Dosage: 450 MG, Q2WK
     Route: 042
     Dates: start: 20170531, end: 20170614

REACTIONS (1)
  - Death [Fatal]

NARRATIVE: CASE EVENT DATE: 20170830
